FAERS Safety Report 23243708 (Version 1)
Quarter: 2023Q4

REPORT INFORMATION
  Report Type: Spontaneous
  Country: IE (occurrence: IE)
  Receive Date: 20231130
  Receipt Date: 20231130
  Transmission Date: 20240110
  Serious: Yes (Other)
  Sender: FDA-Public Use
  Company Number: IE-AstraZeneca-2023A265431

PATIENT

DRUGS (2)
  1. GOSERELIN [Suspect]
     Active Substance: GOSERELIN
     Indication: Menopause
     Dosage: UNK
     Route: 058
  2. ZOLADEX [Suspect]
     Active Substance: GOSERELIN ACETATE
     Indication: Menopause
     Dosage: UNK
     Route: 065

REACTIONS (3)
  - Lung carcinoma cell type unspecified recurrent [Unknown]
  - Adverse drug reaction [Unknown]
  - Fatigue [Unknown]
